FAERS Safety Report 7473976-6 (Version None)
Quarter: 2011Q2

REPORT INFORMATION
  Report Type: 
  Country: None (occurrence: None)
  Receive Date: 20110511
  Receipt Date: 20110506
  Transmission Date: 20111010
  Serious: Yes (Death, Other)
  Sender: FDA-Public Use
  Company Number: DE-PFIZER INC-2011056819

PATIENT
  Age: 68 Year
  Sex: Female

DRUGS (12)
  1. REVATIO [Suspect]
     Indication: PULMONARY ARTERIAL HYPERTENSION
     Dosage: UNK
  2. DIGIMERCK MINOR [Concomitant]
     Dosage: 0.07 MG, ALTERNATE DAY
  3. BENZBROMARONE [Concomitant]
     Dosage: 100 MG, 1X/DAY
  4. LASIX [Concomitant]
     Dosage: 40 MG, 2-1-0
  5. REVATIO [Suspect]
     Dosage: 40 MG, 3X/DAY
     Dates: start: 20080101
  6. ILOPROST [Concomitant]
     Route: 055
  7. CONCOR COR [Concomitant]
     Dosage: 5 MG, 1X/DAY
  8. LEVOTHYROXINE SODIUM [Concomitant]
     Dosage: 175 UG, 1X/DAY
  9. CALCIUM ACETATE [Concomitant]
     Dosage: 500 MG, 3X/DAY
  10. ESIDRIX [Concomitant]
     Dosage: 25 MG, 1X/DAY
  11. METHIMAZOLE [Concomitant]
     Dosage: 5 MG, 1X/DAY
  12. MARCUMAR [Concomitant]
     Dosage: 3 MG, AS NEEDED

REACTIONS (4)
  - STAPHYLOCOCCAL INFECTION [None]
  - DRUG INEFFECTIVE [None]
  - PULMONARY HYPERTENSION [None]
  - COR PULMONALE [None]
